FAERS Safety Report 16989221 (Version 1)
Quarter: 2019Q4

REPORT INFORMATION
  Report Type: Spontaneous
  Country: US (occurrence: US)
  Receive Date: 20191101
  Receipt Date: 20191101
  Transmission Date: 20200122
  Serious: No
  Sender: FDA-Public Use
  Company Number: None

PATIENT
  Age: 46 Year
  Sex: Male
  Weight: 54 kg

DRUGS (2)
  1. CEFAZOLIN [Suspect]
     Active Substance: CEFAZOLIN
     Indication: WOUND INFECTION
     Dosage: ?          OTHER FREQUENCY:EVERY 12 HOURS;?
     Route: 042
     Dates: start: 20191024, end: 20191028
  2. CEFAZOLIN [Suspect]
     Active Substance: CEFAZOLIN
     Indication: WOUND INFECTION
     Dosage: ?          OTHER FREQUENCY:EVERY 12 HOURS;?
     Route: 042
     Dates: start: 20191024, end: 20191028

REACTIONS (2)
  - Rash [None]
  - Pruritus [None]

NARRATIVE: CASE EVENT DATE: 20191028
